FAERS Safety Report 17657985 (Version 3)
Quarter: 2020Q2

REPORT INFORMATION
  Report Type: Report from Study
  Country: IN (occurrence: IN)
  Receive Date: 20200411
  Receipt Date: 20200422
  Transmission Date: 20200713
  Serious: Yes (Death, Hospitalization)
  Sender: FDA-Public Use
  Company Number: IN-AMGEN-INDCT2020059592

PATIENT
  Age: 38 Year
  Sex: Male
  Weight: 60 kg

DRUGS (4)
  1. PANITUMUMAB [Suspect]
     Active Substance: PANITUMUMAB
     Indication: COLORECTAL CANCER METASTATIC
     Dosage: 6 MILLIGRAM/KILOGRAM (360MG), Q2WK
     Route: 042
     Dates: start: 20200214, end: 20200318
  2. PARACETAMOL [Concomitant]
     Active Substance: ACETAMINOPHEN
     Dosage: 500 MILLIGRAM/SOS
     Route: 042
     Dates: start: 20200204, end: 20200413
  3. SODIUM CHLORIDE 0.9% [Concomitant]
     Active Substance: SODIUM CHLORIDE
     Dosage: 100 MILLIGRAM
     Route: 042
     Dates: start: 20200214, end: 20200318
  4. ZOFRAN [Concomitant]
     Active Substance: ONDANSETRON HYDROCHLORIDE
     Indication: PROPHYLAXIS OF NAUSEA AND VOMITING
     Dosage: 16 MILLIGRAM
     Route: 042
     Dates: start: 20200214, end: 20200318

REACTIONS (8)
  - Sepsis [Fatal]
  - Septic shock [Fatal]
  - Electrolyte imbalance [Fatal]
  - Respiratory failure [Fatal]
  - Pneumonitis [Fatal]
  - Acute kidney injury [Fatal]
  - Anaemia [Fatal]
  - Pleural effusion [Fatal]

NARRATIVE: CASE EVENT DATE: 20200329
